FAERS Safety Report 8257209-9 (Version None)
Quarter: 2012Q1

REPORT INFORMATION
  Report Type: 
  Country: None (occurrence: None)
  Receive Date: 20120330
  Receipt Date: 20120321
  Transmission Date: 20120608
  Serious: Yes (Life-Threatening, Hospitalization)
  Sender: FDA-Public Use
  Company Number: WAES 1111USA00219

PATIENT
  Age: 27 Year
  Sex: Male

DRUGS (2)
  1. ISENTRESS [Suspect]
     Indication: HIV INFECTION
     Dosage: 800 MG PO
     Route: 048
     Dates: start: 20110124, end: 20110225
  2. TRUVADA [Suspect]
     Indication: HIV INFECTION
     Dosage: 1 TAB PO
     Route: 048
     Dates: start: 20110124, end: 20110225

REACTIONS (2)
  - COLITIS ULCERATIVE [None]
  - MEGACOLON [None]
